FAERS Safety Report 15431268 (Version 1)
Quarter: 2018Q3

REPORT INFORMATION
  Report Type: Spontaneous
  Country: US (occurrence: US)
  Receive Date: 20180926
  Receipt Date: 20180926
  Transmission Date: 20181010
  Serious: No
  Sender: FDA-Public Use
  Company Number: US-ALLERGAN-1830148US

PATIENT
  Sex: Male

DRUGS (2)
  1. ZENPEP [Suspect]
     Active Substance: PANCRELIPASE AMYLASE\PANCRELIPASE LIPASE\PANCRELIPASE PROTEASE
     Indication: PANCREATIC ATROPHY
     Dosage: 2 DF, QID (2 DF EACH MEAL AND 2 DF BED TIME)
     Route: 048
     Dates: start: 2010
  2. PENTASA [Concomitant]
     Active Substance: MESALAMINE
     Dosage: 500 MG, UNK
     Route: 065

REACTIONS (2)
  - Limb discomfort [Unknown]
  - Diarrhoea [Recovered/Resolved]

NARRATIVE: CASE EVENT DATE: 2010
